FAERS Safety Report 17710066 (Version 2)
Quarter: 2020Q2

REPORT INFORMATION
  Report Type: Spontaneous
  Country: FR (occurrence: FR)
  Receive Date: 20200427
  Receipt Date: 20200429
  Transmission Date: 20200714
  Serious: Yes (Life-Threatening, Other)
  Sender: FDA-Public Use
  Company Number: FR-CELLTRION INC.-2019FR022952

PATIENT

DRUGS (10)
  1. TRASTUZUMAB (UNKNOWN) [Suspect]
     Active Substance: TRASTUZUMAB
     Dosage: 6 MG/KG, Q3W (EVERY 3 WEEKS)
     Route: 042
  2. TAMOXIFEN [Concomitant]
     Active Substance: TAMOXIFEN
     Indication: INVASIVE DUCTAL BREAST CARCINOMA
     Dosage: 20 MILLIGRAM, QD
  3. TRASTUZUMAB (UNKNOWN) [Suspect]
     Active Substance: TRASTUZUMAB
     Dosage: 7TH INJECTION OF EVERY-3-WEEK TRASTUZUMAB
     Route: 042
  4. CYCLOPHOSPHAMIDE. [Suspect]
     Active Substance: CYCLOPHOSPHAMIDE
     Indication: INVASIVE DUCTAL BREAST CARCINOMA
     Dosage: 500 MG/M2, Q3W (EC100) (EVERY 3 WEEKS, 4 CYCLES)
     Route: 065
  5. ANASTROZOLE. [Concomitant]
     Active Substance: ANASTROZOLE
     Indication: INVASIVE DUCTAL BREAST CARCINOMA
     Dosage: UNK
  6. TRASTUZUMAB (UNKNOWN) [Suspect]
     Active Substance: TRASTUZUMAB
     Indication: INVASIVE DUCTAL BREAST CARCINOMA
     Dosage: 2 MG/KG, QW, PER WEEK, 12 CYCLES OF WEEKLY
     Route: 042
  7. ENDOXAN [CYCLOPHOSPHAMIDE MONOHYDRATE] [Suspect]
     Active Substance: CYCLOPHOSPHAMIDE
     Indication: INVASIVE DUCTAL BREAST CARCINOMA
     Dosage: 500 MG/M2, 3 WEEK, 4 CYCLES OF EC
     Route: 065
  8. EPIRUBICIN [Suspect]
     Active Substance: EPIRUBICIN
     Indication: INVASIVE DUCTAL BREAST CARCINOMA
     Dosage: 100 MG/M2, Q3W (EC100) (EVERY 3 WEEKS), 4 CYCLES OF EC
     Route: 065
  9. TRIPTORELIN [Concomitant]
     Active Substance: TRIPTORELIN
     Indication: INVASIVE DUCTAL BREAST CARCINOMA
     Dosage: UNK
  10. PACLITAXEL. [Suspect]
     Active Substance: PACLITAXEL
     Indication: INVASIVE DUCTAL BREAST CARCINOMA
     Dosage: 80 MG/M2, QW, 1 PER WEEK, 12 CYCLES OF WEEKLY
     Route: 065

REACTIONS (7)
  - Amenorrhoea [Unknown]
  - Leukopenia [Unknown]
  - Asthenia [Unknown]
  - Anal inflammation [Unknown]
  - Neutropenia [Recovered/Resolved]
  - Anaemia [Unknown]
  - Stomatitis [Unknown]
